FAERS Safety Report 16262211 (Version 2)
Quarter: 2019Q2

REPORT INFORMATION
  Report Type: Report from Study
  Country: US (occurrence: US)
  Receive Date: 20190501
  Receipt Date: 20190520
  Transmission Date: 20190711
  Serious: Yes (Other)
  Sender: FDA-Public Use
  Company Number: US-GILEAD-2019-0399419

PATIENT
  Age: 98 Year
  Sex: Female

DRUGS (17)
  1. RITUXAN [Suspect]
     Active Substance: RITUXIMAB
     Dosage: NOT PROVIDED, INTRAVENOUS INFUSION, 09-APR-2019, 16-APR-2019, 23-APR-2019, 07-MAY-2019, THEN MONTHLY
     Route: 042
     Dates: start: 20190409, end: 20190409
  2. RITUXAN [Suspect]
     Active Substance: RITUXIMAB
     Dosage: NOT PROVIDED, INTRAVENOUS INFUSIONS EVERY 2 WEEKS, CHANGING TO MONTHLY WITH NEXT INFUSION- JUN-2019.
     Route: 042
  3. CARVEDILOL. [Concomitant]
     Active Substance: CARVEDILOL
     Indication: BLOOD PRESSURE ABNORMAL
     Dosage: 25MG BY MOUTH TWICE DAILY.
  4. TRAMADOL. [Concomitant]
     Active Substance: TRAMADOL
     Dosage: UNK, QD
     Route: 048
  5. LEVOTHYROXINE. [Suspect]
     Active Substance: LEVOTHYROXINE
     Dosage: 0.5 MG; 5 TIMES/WEEK
     Route: 048
     Dates: start: 201904
  6. CLOPIDOGREL [Concomitant]
     Active Substance: CLOPIDOGREL BISULFATE
     Dosage: 75 MG, QD
     Route: 048
     Dates: start: 2017
  7. ORAJEL [Concomitant]
     Active Substance: ALLANTOIN\BENZOCAINE\CAMPHOR (NATURAL)\DIMETHICONE\MENTHOL
     Dosage: NOT PROVIDED, TOPICAL GEL APPLIED TO UPPER LIP AS NEEDED
     Route: 061
  8. LEVOTHYROXINE. [Suspect]
     Active Substance: LEVOTHYROXINE
     Dosage: 0.075 MG; 2 TIMES/WEEK (MON, THURS)
     Route: 048
     Dates: end: 201903
  9. LEVOTHYROXINE. [Suspect]
     Active Substance: LEVOTHYROXINE
     Dosage: 0.075 MG, QD
     Route: 048
     Dates: start: 20190328, end: 20190416
  10. SOTALOL. [Concomitant]
     Active Substance: SOTALOL
     Dosage: 40MG BY MOUTH TWICE DAILY.
  11. RITUXAN [Suspect]
     Active Substance: RITUXIMAB
     Indication: B-CELL LYMPHOMA
     Dosage: UNK
     Route: 042
     Dates: start: 20190310, end: 20190310
  12. LEVOTHYROXINE. [Suspect]
     Active Substance: LEVOTHYROXINE
     Dosage: 0.075 MG; 2 TIMES/WEEK (MON, THURS)
     Route: 048
     Dates: start: 201904
  13. VITAMIN C [CALCIUM ASCORBATE] [Suspect]
     Active Substance: CALCIUM ASCORBATE
     Indication: SUPPLEMENTATION THERAPY
     Dosage: 1 DOSAGE FORM, QD
     Route: 048
     Dates: start: 201804
  14. NEOSPORIN [NEOMYCIN SULFATE;POLYMYXIN B SULFATE] [Concomitant]
     Dosage: NOT PROVIDED, APPLIES OINTMENT TOPICALLY AS NEEDED.
     Route: 061
     Dates: start: 20190512
  15. TYLENOL EXTRA STRENGTH [Concomitant]
     Active Substance: ACETAMINOPHEN
     Dosage: UNK UNK, PRN
     Route: 048
     Dates: end: 201903
  16. IDELALISIB [Suspect]
     Active Substance: IDELALISIB
     Indication: B-CELL LYMPHOMA
     Dosage: 150 MG, BID
     Route: 048
     Dates: start: 20190311
  17. LEVOTHYROXINE. [Suspect]
     Active Substance: LEVOTHYROXINE
     Indication: HYPOTHYROIDISM
     Dosage: 0.5 MG; 5 TIMES/WEEK
     Route: 048
     Dates: end: 201903

REACTIONS (34)
  - Feeling jittery [Unknown]
  - Lip haemorrhage [Not Recovered/Not Resolved]
  - Productive cough [Not Recovered/Not Resolved]
  - Fatigue [Recovering/Resolving]
  - Hypothyroidism [Unknown]
  - Pain in extremity [Not Recovered/Not Resolved]
  - Immune system disorder [Not Recovered/Not Resolved]
  - Tongue discomfort [Not Recovered/Not Resolved]
  - Insomnia [Unknown]
  - Fall [Unknown]
  - Fear [Recovered/Resolved]
  - Fatigue [Recovered/Resolved]
  - Sensory disturbance [Not Recovered/Not Resolved]
  - Depression [Recovered/Resolved]
  - Peripheral coldness [Not Recovered/Not Resolved]
  - Cardiac disorder [Not Recovered/Not Resolved]
  - Hostility [Recovered/Resolved]
  - Oral contusion [Not Recovered/Not Resolved]
  - Injection site bruising [Not Recovered/Not Resolved]
  - Skin disorder [Not Recovered/Not Resolved]
  - Hallucination [Recovered/Resolved]
  - Mood altered [Recovered/Resolved]
  - Lip pain [Not Recovered/Not Resolved]
  - Glossodynia [Not Recovered/Not Resolved]
  - Psychomotor hyperactivity [Recovered/Resolved]
  - Skin abrasion [Not Recovered/Not Resolved]
  - Confusional state [Recovered/Resolved]
  - Arthralgia [Not Recovered/Not Resolved]
  - Stomatitis [Not Recovered/Not Resolved]
  - Somnolence [Not Recovered/Not Resolved]
  - Decreased appetite [Recovering/Resolving]
  - Joint swelling [Recovering/Resolving]
  - Renal disorder [Not Recovered/Not Resolved]
  - Headache [Not Recovered/Not Resolved]

NARRATIVE: CASE EVENT DATE: 201903
